FAERS Safety Report 8230960-2 (Version None)
Quarter: 2012Q1

REPORT INFORMATION
  Report Type: 
  Country: None (occurrence: None)
  Receive Date: 20120320
  Receipt Date: 20120308
  Transmission Date: 20120608
  Serious: Yes (Hospitalization)
  Sender: FDA-Public Use
  Company Number: 2011SP058632

PATIENT
  Age: 72 Year
  Sex: Female

DRUGS (4)
  1. RIBAVIRIN [Suspect]
     Indication: HEPATITIS C
     Dates: start: 20090401, end: 20090901
  2. PEGINTERFERON ALFA-2B [Suspect]
     Indication: HEPATITIS C
     Dates: start: 20090401, end: 20100101
  3. PEGASYS [Suspect]
     Indication: HEPATITIS C
     Dates: start: 20090401, end: 20100101
  4. COPEGUS [Suspect]
     Indication: HEPATITIS C
     Dates: start: 20090401, end: 20090901

REACTIONS (11)
  - PYREXIA [None]
  - PANCYTOPENIA [None]
  - MONOCLONAL GAMMOPATHY [None]
  - HAEMODIALYSIS [None]
  - PLEURAL EFFUSION [None]
  - OEDEMA [None]
  - GLOMERULONEPHRITIS MEMBRANOPROLIFERATIVE [None]
  - ASCITES [None]
  - HYPOCOMPLEMENTAEMIA [None]
  - CRYOGLOBULINS PRESENT [None]
  - NEPHROTIC SYNDROME [None]
